FAERS Safety Report 19612642 (Version 1)
Quarter: 2021Q3

REPORT INFORMATION
  Report Type: Spontaneous
  Country: FR (occurrence: FR)
  Receive Date: 20210727
  Receipt Date: 20210727
  Transmission Date: 20211014
  Serious: Yes (Other)
  Sender: FDA-Public Use
  Company Number: FR-TEVA-2021-FR-1935122

PATIENT
  Sex: Female

DRUGS (1)
  1. AMOXICILLINE [Suspect]
     Active Substance: AMOXICILLIN
     Indication: PRODUCT USED FOR UNKNOWN INDICATION
     Dosage: DOSAGE NOT KNOWNTHERAPY START DATE :THERAPY END DATE :NOT ASKED
     Route: 048

REACTIONS (2)
  - Laryngeal injury [Recovered/Resolved]
  - Aphthous ulcer [Recovered/Resolved]
